FAERS Safety Report 7115664-1 (Version None)
Quarter: 2010Q4

REPORT INFORMATION
  Report Type: 
  Country: None (occurrence: None)
  Receive Date: 20101122
  Receipt Date: 20101117
  Transmission Date: 20110411
  Serious: Yes (Other)
  Sender: FDA-Public Use
  Company Number: CA-AMGEN-CANSP2010001567

PATIENT

DRUGS (4)
  1. ENBREL [Suspect]
     Indication: PSORIATIC ARTHROPATHY
     Dosage: 50 MG, QWK
     Dates: start: 20100927, end: 20101001
  2. CELEBREX [Concomitant]
  3. METOPROLOL TARTRATE [Concomitant]
  4. NEXIUM [Concomitant]

REACTIONS (8)
  - COUGH [None]
  - DYSPHONIA [None]
  - HEADACHE [None]
  - MUSCLE SPASMS [None]
  - MUSCULAR WEAKNESS [None]
  - NEUROPATHY PERIPHERAL [None]
  - PSORIASIS [None]
  - SINUSITIS [None]
